FAERS Safety Report 8022332-0 (Version None)
Quarter: 2012Q1

REPORT INFORMATION
  Report Type: 
  Country: None (occurrence: None)
  Receive Date: 20120104
  Receipt Date: 20111226
  Transmission Date: 20120608
  Serious: Yes (Hospitalization, Other)
  Sender: FDA-Public Use
  Company Number: US-ASTRAZENECA-2011SE78800

PATIENT
  Age: 4 Year
  Sex: Male

DRUGS (1)
  1. ATENOLOL [Suspect]
     Indication: ARRHYTHMIA
     Dosage: 1 MG/KG/DAY DIVIDED TWICE DAILY (4.25 ML PER DOSE) OF A 2 MG/ML SOLUTION
     Route: 048

REACTIONS (2)
  - ATRIOVENTRICULAR BLOCK [None]
  - BRADYCARDIA [None]
